FAERS Safety Report 21605757 (Version 2)
Quarter: 2023Q1

REPORT INFORMATION
  Report Type: Spontaneous
  Country: ES (occurrence: ES)
  Receive Date: 20221116
  Receipt Date: 20230316
  Transmission Date: 20230417
  Serious: Yes (Life-Threatening, Hospitalization, Other)
  Sender: FDA-Public Use
  Company Number: ES-MLMSERVICE-20221104-3889975-1

PATIENT
  Age: 66 Year
  Sex: Male

DRUGS (11)
  1. AMIODARONE [Suspect]
     Active Substance: AMIODARONE
     Indication: Atrial flutter
     Dosage: 2600 MILLIGRAM, TOTAL (THE TOTAL CUMULATIVE DOSE WAS 2,600 MG AMIODARONE IN 56 H)
     Route: 042
  2. AMIODARONE [Suspect]
     Active Substance: AMIODARONE
     Dosage: 1200 MILLIGRAM, ONCE A DAY
     Route: 042
  3. BISOPROLOL [Concomitant]
     Active Substance: BISOPROLOL
     Indication: Product used for unknown indication
     Dosage: 2.5 MILLIGRAM, TWO TIMES A DAY
     Route: 065
  4. DEXAMETHASONE [Concomitant]
     Active Substance: DEXAMETHASONE
     Indication: Product used for unknown indication
     Dosage: 4 MILLIGRAM, ONCE A DAY
     Route: 065
  5. DILTIAZEM [Concomitant]
     Active Substance: DILTIAZEM
     Indication: Product used for unknown indication
     Dosage: 60 MILLIGRAM
     Route: 065
  6. EZETIMIBE [Concomitant]
     Active Substance: EZETIMIBE
     Indication: Product used for unknown indication
     Dosage: 10 MILLIGRAM, ONCE A DAY
     Route: 065
  7. FENOFIBRATE [Concomitant]
     Active Substance: FENOFIBRATE
     Indication: Product used for unknown indication
     Dosage: 160 MILLIGRAM, ONCE A DAY
     Route: 065
  8. HYDROCHLOROTHIAZIDE\TELMISARTAN [Concomitant]
     Active Substance: HYDROCHLOROTHIAZIDE\TELMISARTAN
     Indication: Product used for unknown indication
     Dosage: UNK
     Route: 065
  9. METFORMIN\VILDAGLIPTIN [Concomitant]
     Active Substance: METFORMIN\VILDAGLIPTIN
     Indication: Product used for unknown indication
     Dosage: UNK
     Route: 065
  10. METOCLOPRAMIDE [Concomitant]
     Active Substance: METOCLOPRAMIDE
     Indication: Product used for unknown indication
     Dosage: 10 MILLIGRAM, 3 TIMES A DAY
     Route: 065
  11. OMEPRAZOLE [Concomitant]
     Active Substance: OMEPRAZOLE
     Indication: Product used for unknown indication
     Dosage: 40 MILLIGRAM, ONCE A DAY
     Route: 065

REACTIONS (6)
  - Acute hepatic failure [Recovering/Resolving]
  - Hepatitis toxic [Recovering/Resolving]
  - Metabolic acidosis [Recovering/Resolving]
  - Acute kidney injury [Recovering/Resolving]
  - Overdose [Recovered/Resolved]
  - Drug ineffective [Unknown]
